FAERS Safety Report 25953949 (Version 1)
Quarter: 2025Q4

REPORT INFORMATION
  Report Type: Spontaneous
  Country: DO (occurrence: DO)
  Receive Date: 20251023
  Receipt Date: 20251023
  Transmission Date: 20260117
  Serious: Yes (Disabling, Other)
  Sender: NOVO NORDISK
  Company Number: DO-NOVOPROD-1541130

PATIENT
  Sex: Female
  Weight: 133 kg

DRUGS (2)
  1. VICTOZA [Suspect]
     Active Substance: LIRAGLUTIDE
     Indication: Type 1 diabetes mellitus
     Dosage: UNK
  2. VILDAGLIPTIN [Concomitant]
     Active Substance: VILDAGLIPTIN
     Indication: Type 1 diabetes mellitus
     Dosage: START DATE: APPROXIMATELY 4 YEARS AGO / 1 TABLET PER DAY
     Route: 048
     Dates: start: 2021

REACTIONS (4)
  - Thrombosis [Not Recovered/Not Resolved]
  - Bedridden [Not Recovered/Not Resolved]
  - Blood glucose increased [Not Recovered/Not Resolved]
  - Off label use [Unknown]
